FAERS Safety Report 5219124-4 (Version None)
Quarter: 2007Q1

REPORT INFORMATION
  Report Type: 
  Country: None (occurrence: None)
  Receive Date: 20061121
  Receipt Date: 20060911
  Transmission Date: 20070707
  Serious: No
  Sender: FDA-Public Use
  Company Number: TPA2006A01565

PATIENT

DRUGS (2)
  1. ROZEREM [Suspect]
     Dosage: 8 MG, PER ORAL
     Route: 048
  2. UNKNOWN STATIN (ALL OTHER THERAPEUTIC PRODUCTS) [Concomitant]

REACTIONS (3)
  - HYPERSENSITIVITY [None]
  - RASH [None]
  - URTICARIA [None]
